FAERS Safety Report 6496280-1 (Version None)
Quarter: 2009Q4

REPORT INFORMATION
  Report Type: 
  Country: None (occurrence: None)
  Receive Date: 20091214
  Receipt Date: 20091201
  Transmission Date: 20100525
  Serious: Yes (Other)
  Sender: FDA-Public Use
  Company Number: US-ELI_LILLY_AND_COMPANY-US200910003211

PATIENT
  Age: 79 Year
  Sex: Female
  Weight: 54.422 kg

DRUGS (3)
  1. CYMBALTA [Suspect]
     Indication: MAJOR DEPRESSION
     Dosage: 60 MG, UNK
  2. CYMBALTA [Suspect]
     Dosage: 90 MG, UNK
     Dates: start: 20090101, end: 20090101
  3. CYMBALTA [Suspect]
     Dosage: 60 MG, UNK
     Dates: start: 20090101

REACTIONS (3)
  - DEPRESSION [None]
  - PATHOLOGICAL FRACTURE [None]
  - PELVIC FRACTURE [None]
